FAERS Safety Report 9602428 (Version 2)
Quarter: 2013Q4

REPORT INFORMATION
  Report Type: Spontaneous
  Country: JP (occurrence: JP)
  Receive Date: 20131007
  Receipt Date: 20131022
  Transmission Date: 20140711
  Serious: Yes (Hospitalization)
  Sender: FDA-Public Use
  Company Number: PHHY2013JP110436

PATIENT
  Age: 80 Year
  Sex: Male

DRUGS (2)
  1. NEORAL [Suspect]
     Indication: APLASTIC ANAEMIA
     Route: 048
  2. ANTIBIOTICS [Concomitant]

REACTIONS (1)
  - Intestinal obstruction [Unknown]
